FAERS Safety Report 11290705 (Version 1)
Quarter: 2015Q3

REPORT INFORMATION
  Report Type: Spontaneous
  Country: US (occurrence: US)
  Receive Date: 20150722
  Receipt Date: 20150722
  Transmission Date: 20151125
  Serious: No
  Sender: FDA-Public Use
  Company Number: US-UNITED THERAPEUTICS-UNT-2014-007799

PATIENT
  Age: 61 Year
  Sex: Male
  Weight: 71.66 kg

DRUGS (2)
  1. REMODULIN [Suspect]
     Active Substance: TREPROSTINIL
     Indication: PULMONARY ARTERIAL HYPERTENSION
     Dosage: 0.0115 ?G/KG/MIN, CONTINUING
     Route: 058
     Dates: start: 20101113, end: 20150211
  2. WARFARIN [Concomitant]
     Active Substance: WARFARIN
     Indication: PRODUCT USED FOR UNKNOWN INDICATION

REACTIONS (3)
  - Infusion site erythema [Not Recovered/Not Resolved]
  - Infusion site pain [Recovering/Resolving]
  - Infusion site oedema [Not Recovered/Not Resolved]

NARRATIVE: CASE EVENT DATE: 20141226
